FAERS Safety Report 22058404 (Version 1)
Quarter: 2023Q1

REPORT INFORMATION
  Report Type: Report from Study
  Country: US (occurrence: None)
  Receive Date: 20230303
  Receipt Date: 20230303
  Transmission Date: 20230417
  Serious: Yes (Death)
  Sender: FDA-Public Use
  Company Number: 2023A050074

PATIENT
  Sex: Female
  Weight: 59 kg

DRUGS (11)
  1. TAGRISSO [Suspect]
     Active Substance: OSIMERTINIB
     Indication: Lung neoplasm malignant
     Route: 048
     Dates: start: 20220915
  2. ELIQUIS [Concomitant]
     Active Substance: APIXABAN
  3. PANTOPRAZOLE SODIUM [Concomitant]
     Active Substance: PANTOPRAZOLE SODIUM
  4. DEXAMETHASONE [Concomitant]
     Active Substance: DEXAMETHASONE
  5. AQUAPHOR [Concomitant]
     Active Substance: PETROLATUM
  6. ATORVASTATIN CALCIUM [Concomitant]
     Active Substance: ATORVASTATIN CALCIUM
  7. ASPIRIN [Concomitant]
     Active Substance: ASPIRIN
  8. GABAPENTIN [Concomitant]
     Active Substance: GABAPENTIN
  9. METOPROLOL SUCCINATE [Concomitant]
     Active Substance: METOPROLOL SUCCINATE
  10. LISINOPRIL [Concomitant]
     Active Substance: LISINOPRIL
  11. VITAMIN D2 [Concomitant]
     Active Substance: ERGOCALCIFEROL

REACTIONS (1)
  - Death [Fatal]
